FAERS Safety Report 8595489-0 (Version None)
Quarter: 2012Q3

REPORT INFORMATION
  Report Type: 
  Country: None (occurrence: None)
  Receive Date: 20120815
  Receipt Date: 20120718
  Transmission Date: 20120928
  Serious: No
  Sender: FDA-Public Use
  Company Number: GB-009507513-1206USA00238

PATIENT

DRUGS (13)
  1. BENDAMUSTINE HYDROCHLORIDE [Suspect]
     Dosage: 70 MG/M2, QD
     Dates: start: 20110711
  2. CIPROFLOXACIN HCL [Concomitant]
     Indication: PROPHYLAXIS
     Dosage: 250 MG, BID
  3. BENDAMUSTINE HYDROCHLORIDE [Suspect]
     Indication: CHRONIC LYMPHOCYTIC LEUKAEMIA
     Dosage: 70 MG/M2, QD
     Dates: start: 20110613, end: 20110614
  4. ACYCLOVIR [Concomitant]
     Indication: PROPHYLAXIS
     Dosage: 400 MG, TID
  5. ALLOPURINOL [Concomitant]
     Indication: PROPHYLAXIS
     Dosage: 1300 MG, QD
  6. BENDAMUSTINE HYDROCHLORIDE [Suspect]
     Dosage: 70 MG/M2, QD
     Dates: start: 20110809
  7. ENOXAPARIN SODIUM [Concomitant]
     Indication: PROPHYLAXIS
     Dosage: 100 MG, QD
     Route: 058
  8. SIMVASTATIN [Concomitant]
     Dosage: 20 MG, QD
  9. RAMIPRIL [Concomitant]
     Dosage: 5 MG, QD
  10. DECADRON PHOSPHATE [Suspect]
     Indication: CHRONIC LYMPHOCYTIC LEUKAEMIA
     Dosage: 20 MG, QD
     Dates: start: 20110602
  11. FLUCONAZOLE [Concomitant]
     Indication: PROPHYLAXIS
     Dosage: 50 MG, QD
  12. ASPIRIN [Concomitant]
     Dosage: 75 MG, QD
  13. PRILOSEC [Concomitant]
     Indication: PROPHYLAXIS
     Dosage: 20 MG, QD

REACTIONS (1)
  - NO ADVERSE EVENT [None]
